FAERS Safety Report 22384207 (Version 1)
Quarter: 2023Q2

REPORT INFORMATION
  Report Type: Spontaneous
  Country: JP (occurrence: JP)
  Receive Date: 20230530
  Receipt Date: 20230530
  Transmission Date: 20230722
  Serious: No
  Sender: FDA-Public Use
  Company Number: JP-PFIZER INC-PV202300095314

PATIENT

DRUGS (1)
  1. PAXLOVID [Suspect]
     Active Substance: NIRMATRELVIR\RITONAVIR
     Indication: COVID-19 treatment
     Dosage: TOOK THE RITONAVIR PART IN THE MORNING(2 TABLETS OF RITONAVIR100MG FOR MORNING DOSE AND EVENING DOSE
     Route: 048

REACTIONS (1)
  - Incorrect dose administered [Unknown]
